FAERS Safety Report 9663842 (Version 1)
Quarter: 2013Q4

REPORT INFORMATION
  Report Type: Spontaneous
  Country: US (occurrence: None)
  Receive Date: 20131030
  Receipt Date: 20131030
  Transmission Date: 20140711
  Serious: Yes (Life-Threatening, Disabling)
  Sender: FDA-Public Use
  Company Number: None

PATIENT
  Age: 44 Year
  Sex: Male
  Weight: 77.11 kg

DRUGS (1)
  1. QUETIAPINE [Suspect]
     Indication: ANGER
     Dosage: 1 PILL ONCE A DAY
     Route: 048
     Dates: start: 200310, end: 200311

REACTIONS (16)
  - Gait disturbance [None]
  - Dyspnoea [None]
  - Musculoskeletal stiffness [None]
  - Headache [None]
  - Muscle spasms [None]
  - Vertigo [None]
  - Muscle twitching [None]
  - Muscle spasms [None]
  - Hyperhidrosis [None]
  - Vision blurred [None]
  - Pain [None]
  - Chest pain [None]
  - Swollen tongue [None]
  - Restlessness [None]
  - Erectile dysfunction [None]
  - Nausea [None]
